FAERS Safety Report 4833006-9 (Version None)
Quarter: 2005Q4

REPORT INFORMATION
  Report Type: 
  Country: None (occurrence: None)
  Receive Date: 20051121
  Receipt Date: 20050720
  Transmission Date: 20060501
  Serious: Yes (Other)
  Sender: FDA-Public Use
  Company Number: PHEH2005US08043

PATIENT
  Age: 71 Year
  Sex: Female

DRUGS (16)
  1. ZOMETA [Suspect]
     Indication: METASTASES TO BONE
     Dosage: EVERY MONTHLY
     Dates: start: 20021003, end: 20050609
  2. HERCEPTIN [Concomitant]
     Indication: BREAST CANCER
     Dosage: 100 MG VARIES
     Dates: start: 20021003
  3. ABRAXANE [Concomitant]
  4. ADRIAMYCIN PFS [Concomitant]
     Indication: BREAST CANCER
     Dosage: 86 MG EVERY 3 WEEKS
     Dates: start: 20000820, end: 20001023
  5. CYTOXAN [Concomitant]
     Indication: BREAST CANCER
     Dosage: 860 MG EVERY 3 WEEKS
     Dates: start: 20000820, end: 20001023
  6. TAXOTERE [Concomitant]
     Indication: BREAST CANCER
     Dosage: 50 MG, EVERY WEEK
     Dates: start: 20021003, end: 20021215
  7. NEULASTA [Concomitant]
     Indication: NEUTROPENIA
     Dosage: 6 MG, PRN
     Dates: start: 20030327
  8. ARANESP [Concomitant]
     Indication: ANAEMIA
     Dosage: 200 MG, PRN
     Dates: start: 20021107, end: 20030911
  9. ARANESP [Concomitant]
     Dosage: 300 MG, PRN
     Dates: start: 20031010
  10. TAXOL [Concomitant]
     Indication: BREAST CANCER
     Dosage: 200 MG, UNK
     Dates: start: 20030724, end: 20031229
  11. CARBOPLATIN [Concomitant]
     Indication: BREAST CANCER
     Dosage: 600 MG, UNK
     Dates: start: 20030724, end: 20031229
  12. GEMZAR [Concomitant]
     Indication: BREAST CANCER
     Dosage: 1300 MG, UNK
     Dates: start: 20050203, end: 20050401
  13. CISPLATIN [Concomitant]
     Indication: BREAST CANCER
     Dosage: 27 MG, UNK
     Dates: start: 20050203, end: 20050401
  14. NAVELBINE [Concomitant]
     Indication: BREAST CANCER
     Dosage: 30 MG EVERY 2-3 TIMES WEEKLY
     Dates: start: 20020313, end: 20030703
  15. AVASTIN [Concomitant]
     Indication: BREAST CANCER
     Dosage: 380 MG EVERY 3 WEEKS
     Dates: start: 20050929
  16. XELODA [Concomitant]
     Indication: BREAST CANCER
     Dates: start: 20040702, end: 20040909

REACTIONS (16)
  - BONE DISORDER [None]
  - DENTAL NECROSIS [None]
  - ENDODONTIC PROCEDURE [None]
  - ERYTHEMA [None]
  - GINGIVAL INFECTION [None]
  - IMPAIRED HEALING [None]
  - OEDEMA MUCOSAL [None]
  - ORAL SOFT TISSUE DISORDER [None]
  - OSTEOMYELITIS [None]
  - OSTEONECROSIS [None]
  - PAIN IN JAW [None]
  - PERIODONTITIS [None]
  - SOFT TISSUE INFECTION [None]
  - TOOTH DISORDER [None]
  - TOOTH FRACTURE [None]
  - TOOTH LOSS [None]
